FAERS Safety Report 9742086 (Version 1)
Quarter: 2013Q4

REPORT INFORMATION
  Report Type: Spontaneous
  Country: US (occurrence: US)
  Receive Date: 20131210
  Receipt Date: 20131210
  Transmission Date: 20140711
  Serious: No
  Sender: FDA-Public Use
  Company Number: 2012SP004432

PATIENT
  Sex: Male

DRUGS (5)
  1. FLUOROURACIL [Suspect]
     Indication: COLORECTAL CANCER METASTATIC
     Route: 042
     Dates: start: 2012, end: 2012
  2. IRINOTECAN HCL [Suspect]
     Indication: COLORECTAL CANCER METASTATIC
     Route: 042
     Dates: start: 2012, end: 2012
  3. AFLIBERCEPT [Suspect]
     Indication: COLORECTAL CANCER METASTATIC
     Route: 042
     Dates: start: 2012, end: 2012
  4. FOLINIC ACID [Suspect]
     Indication: COLORECTAL CANCER METASTATIC
     Route: 042
     Dates: start: 2012, end: 2012
  5. CAPECITABINE [Concomitant]

REACTIONS (3)
  - Neutropenia [Unknown]
  - Headache [Recovered/Resolved]
  - Hepatic enzyme increased [Unknown]
